FAERS Safety Report 21056218 (Version 1)
Quarter: 2022Q3

REPORT INFORMATION
  Report Type: Spontaneous
  Country: ES (occurrence: ES)
  Receive Date: 20220708
  Receipt Date: 20220708
  Transmission Date: 20221027
  Serious: Yes (Hospitalization)
  Sender: FDA-Public Use
  Company Number: None

PATIENT
  Age: 78 Year
  Sex: Female
  Weight: 70 kg

DRUGS (3)
  1. POLATUZUMAB VEDOTIN [Suspect]
     Active Substance: POLATUZUMAB VEDOTIN
     Indication: High grade B-cell lymphoma Burkitt-like lymphoma stage IV
     Dosage: 131 MG (1.8 MG/KG) C/21 DIES
     Route: 042
     Dates: start: 20220328, end: 20220328
  2. BENDAMUSTINE [Suspect]
     Active Substance: BENDAMUSTINE
     Indication: High grade B-cell lymphoma Burkitt-like lymphoma stage IV
     Dosage: 158 MG (90 MG/M2) DIA 1 I 2 C/21 DIES
     Route: 042
     Dates: start: 20220328, end: 20220329
  3. RITUXIMAB [Concomitant]
     Active Substance: RITUXIMAB
     Indication: High grade B-cell lymphoma Burkitt-like lymphoma stage IV
     Route: 042
     Dates: start: 20220223

REACTIONS (1)
  - Acute polyneuropathy [Recovering/Resolving]

NARRATIVE: CASE EVENT DATE: 20220331
